FAERS Safety Report 12644641 (Version 3)
Quarter: 2017Q1

REPORT INFORMATION
  Report Type: Report from Study
  Country: US (occurrence: US)
  Receive Date: 20160811
  Receipt Date: 20170127
  Transmission Date: 20170428
  Serious: Yes (Hospitalization)
  Sender: FDA-Public Use
  Company Number: US-GILEAD-2016-0227457

PATIENT
  Age: 51 Year
  Sex: Female

DRUGS (6)
  1. VELETRI [Concomitant]
     Active Substance: EPOPROSTENOL
  2. SPIRONOLACTONE. [Concomitant]
     Active Substance: SPIRONOLACTONE
  3. TORSEMIDE. [Concomitant]
     Active Substance: TORSEMIDE
  4. AMBRISENTAN [Suspect]
     Active Substance: AMBRISENTAN
     Indication: PULMONARY ARTERIAL HYPERTENSION
     Dosage: 10 MG, QD
     Route: 065
     Dates: start: 20131218
  5. COUMADIN [Concomitant]
     Active Substance: WARFARIN SODIUM
  6. ADCIRCA [Concomitant]
     Active Substance: TADALAFIL

REACTIONS (2)
  - Fluid retention [Unknown]
  - Chest pain [Recovered/Resolved]

NARRATIVE: CASE EVENT DATE: 20160801
